FAERS Safety Report 8828512 (Version 2)
Quarter: 2012Q4

REPORT INFORMATION
  Report Type: 
  Country: BR (occurrence: BR)
  Receive Date: 20121005
  Receipt Date: 20121023
  Transmission Date: 20130627
  Serious: Yes (Hospitalization)
  Sender: FDA-Public Use
  Company Number: BR-B.I. PHARMACEUTICALS,INC./RIDGEFIELD-2012-BR-01117BR

PATIENT
  Age: 68 None
  Sex: Female

DRUGS (5)
  1. COMBIVENT [Suspect]
     Indication: EMPHYSEMA
     Route: 055
     Dates: start: 2006, end: 201209
  2. ATROVENT N [Suspect]
     Indication: EMPHYSEMA
     Route: 055
     Dates: start: 201209
  3. BEROTEC [Suspect]
     Indication: EMPHYSEMA
     Dosage: 100 mcg
     Route: 055
     Dates: start: 201209
  4. AEROLIN [Concomitant]
     Indication: EMPHYSEMA
  5. ALENIA [Concomitant]
     Indication: EMPHYSEMA

REACTIONS (4)
  - Oxygen saturation decreased [Not Recovered/Not Resolved]
  - Dyspnoea [Not Recovered/Not Resolved]
  - Fatigue [Not Recovered/Not Resolved]
  - Dyspnoea [Recovered/Resolved]
